FAERS Safety Report 4308057-3 (Version None)
Quarter: 2004Q1

REPORT INFORMATION
  Report Type: 
  Country: None (occurrence: None)
  Receive Date: 20040301
  Receipt Date: 20030421
  Transmission Date: 20041129
  Serious: No
  Sender: FDA-Public Use
  Company Number: US-BRISTOL-MYERS SQUIBB COMPANY-12247250

PATIENT
  Sex: Female

DRUGS (10)
  1. GLUCOPHAGE [Suspect]
     Dates: start: 20020101
  2. DETROL LA [Suspect]
     Dates: start: 20020101
  3. ALDACTONE [Suspect]
  4. ZOCOR [Suspect]
  5. METAMUCIL-2 [Suspect]
  6. FOSAMAX [Suspect]
  7. CALCIUM [Suspect]
  8. AMITRIPTYLINE HCL [Suspect]
  9. TOPRAL [Suspect]
  10. DIOVAN [Suspect]

REACTIONS (1)
  - DIZZINESS [None]
